FAERS Safety Report 9729485 (Version 2)
Quarter: 2013Q4

REPORT INFORMATION
  Report Type: Spontaneous
  Country: US (occurrence: US)
  Receive Date: 20131204
  Receipt Date: 20131204
  Transmission Date: 20140711
  Serious: No
  Sender: FDA-Public Use
  Company Number: US-GILEAD-2009-0021631

PATIENT
  Sex: Female
  Weight: 78.92 kg

DRUGS (19)
  1. LETAIRIS [Suspect]
     Indication: PULMONARY ARTERIAL HYPERTENSION
     Route: 048
     Dates: start: 20070815
  2. SITAXENTAN [Concomitant]
  3. COUMADIN [Concomitant]
  4. CARTIA XT [Concomitant]
  5. LASIX [Concomitant]
  6. NORVASC [Concomitant]
  7. LANOXIN [Concomitant]
  8. PLAVIX [Concomitant]
  9. SINGULAIR [Concomitant]
  10. SYNTHROID [Concomitant]
  11. FOSAMAX [Concomitant]
  12. TYLENOLE ARTHRITIS [Concomitant]
  13. CALCIUM PLUS VITAMIN D [Concomitant]
  14. VITAMIN D [Concomitant]
  15. POTASSIUM CHLORIDE [Concomitant]
  16. ALLEGRA [Concomitant]
  17. TUMS EX [Concomitant]
  18. COLACE [Concomitant]
  19. ANUSOL-HC SUPPOSITORY [Concomitant]

REACTIONS (3)
  - Hepatic steatosis [Unknown]
  - Abdominal discomfort [Unknown]
  - Bone neoplasm [Unknown]
